FAERS Safety Report 21136499 (Version 1)
Quarter: 2022Q3

REPORT INFORMATION
  Report Type: Spontaneous
  Country: US (occurrence: None)
  Receive Date: 20220726
  Receipt Date: 20220726
  Transmission Date: 20221026
  Serious: Yes (Hospitalization)
  Sender: FDA-Public Use
  Company Number: None

PATIENT
  Sex: Male

DRUGS (21)
  1. TESTOPEL [Suspect]
     Active Substance: TESTOSTERONE
     Dosage: FREQUENCY : AS DIRECTED;?OTHER ROUTE : IMPLANT;?INSERT 10 PELLETS UNDER THE SKIN PER OFFICE VISIT EV
     Route: 050
     Dates: start: 20170504
  2. AIMOVIG [Concomitant]
     Active Substance: ERENUMAB-AOOE
  3. ASPIRIN CHW [Concomitant]
  4. CELEBREX [Concomitant]
     Active Substance: CELECOXIB
  5. COREG [Concomitant]
     Active Substance: CARVEDILOL
  6. CRESTOR [Concomitant]
     Active Substance: ROSUVASTATIN CALCIUM
  7. CYMBALTA [Concomitant]
     Active Substance: DULOXETINE HYDROCHLORIDE
  8. FISH OIL [Concomitant]
     Active Substance: FISH OIL
  9. KLOR-CON [Concomitant]
     Active Substance: POTASSIUM CHLORIDE
  10. LOSARTAN POT TAB [Concomitant]
  11. LOVENOX INJ [Concomitant]
  12. METHYLPHENID TAB [Concomitant]
  13. MULTIPLE VIT TAB [Concomitant]
  14. OXYCODONE [Concomitant]
     Active Substance: OXYCODONE
  15. PANTOPRAZOLE [Concomitant]
     Active Substance: PANTOPRAZOLE
  16. ROSUVASTATIN [Concomitant]
     Active Substance: ROSUVASTATIN
  17. TADALAFIL [Concomitant]
     Active Substance: TADALAFIL
  18. TOPIRAMATE CAP [Concomitant]
  19. DEVICE [Concomitant]
     Active Substance: DEVICE
  20. VIT D3/VIT C [Concomitant]
  21. VITAMIN D3 [Concomitant]
     Active Substance: CHOLECALCIFEROL

REACTIONS (1)
  - Surgery [None]
